FAERS Safety Report 4267272-8 (Version None)
Quarter: 2004Q1

REPORT INFORMATION
  Report Type: 
  Country: None (occurrence: None)
  Receive Date: 20040107
  Receipt Date: 20040106
  Transmission Date: 20041129
  Serious: Yes (Disabling, Other)
  Sender: FDA-Public Use
  Company Number: 04-01-0005

PATIENT
  Age: 42 Year
  Sex: Female

DRUGS (11)
  1. ALBUTEROL METERED DOSE INHALER 90 MCG - IPI ORAL AEROSOL [Suspect]
  2. ECHINACEA EXTRACT [Suspect]
     Route: 048
  3. NIFEDIPINE [Suspect]
  4. BENDROFLUAZIDE [Suspect]
  5. CODEINE PHOSPHATE [Suspect]
  6. DICLOFENAC SODIUM [Suspect]
  7. DOTHIEPIN HYDROCHLORIDE [Suspect]
  8. DOXAPRAM HCL [Suspect]
  9. IRON SULFATETHIAMIN COMPOUND TAB [Suspect]
  10. TRANEXAMIC ACID [Suspect]
  11. BECLOMETHASONE DIPROPIONATE [Suspect]

REACTIONS (2)
  - COAGULOPATHY [None]
  - DRUG INTERACTION [None]
